FAERS Safety Report 17064646 (Version 2)
Quarter: 2020Q1

REPORT INFORMATION
  Report Type: Spontaneous
  Country: US (occurrence: US)
  Receive Date: 20191122
  Receipt Date: 20200210
  Transmission Date: 20200409
  Serious: No
  Sender: FDA-Public Use
  Company Number: US-PFIZER INC-2019503583

PATIENT
  Age: 58 Year
  Sex: Female

DRUGS (12)
  1. ACETAMINOPHEN;HYDROCODONE [Concomitant]
     Active Substance: ACETAMINOPHEN\HYDROCODONE
     Dosage: UNK
  2. POTASSIUM GLUCONATE [Concomitant]
     Active Substance: POTASSIUM GLUCONATE
     Dosage: UNK
  3. ESZOPICLONE. [Concomitant]
     Active Substance: ESZOPICLONE
     Dosage: UNK
  4. DULOXETINE. [Concomitant]
     Active Substance: DULOXETINE
     Dosage: UNK
  5. IBRANCE [Suspect]
     Active Substance: PALBOCICLIB
     Indication: BREAST CANCER FEMALE
     Dosage: 100 MG, CYCLIC (DAILY FOR 21 DAYS, OFF 7 DAYS/DAILY FOR 21 OUT OF 28 DAYS)
     Route: 048
     Dates: start: 20161205
  6. VITAMIN D3 [Concomitant]
     Active Substance: CHOLECALCIFEROL
     Dosage: UNK
  7. PROPAFENONE. [Concomitant]
     Active Substance: PROPAFENONE
     Dosage: UNK
  8. AMITRIPTYLINE [Concomitant]
     Active Substance: AMITRIPTYLINE
     Dosage: UNK
  9. ATENOLOL AND CHLORTHALIDONE [Concomitant]
     Active Substance: ATENOLOL\CHLORTHALIDONE
     Dosage: UNK
  10. CRANBERRY. [Concomitant]
     Active Substance: CRANBERRY
     Dosage: UNK
  11. CYMBALTA [Concomitant]
     Active Substance: DULOXETINE HYDROCHLORIDE
     Dosage: UNK
  12. FASLODEX [Concomitant]
     Active Substance: FULVESTRANT
     Dosage: UNK

REACTIONS (7)
  - Sinusitis [Recovered/Resolved]
  - Memory impairment [Unknown]
  - Temporomandibular joint syndrome [Unknown]
  - Product dose omission [Unknown]
  - Fatigue [Unknown]
  - Cognitive disorder [Unknown]
  - Insomnia [Unknown]

NARRATIVE: CASE EVENT DATE: 201911
